FAERS Safety Report 6147123-7 (Version None)
Quarter: 2009Q2

REPORT INFORMATION
  Report Type: 
  Country: None (occurrence: None)
  Receive Date: 20090403
  Receipt Date: 20090324
  Transmission Date: 20091009
  Serious: Yes (Hospitalization)
  Sender: FDA-Public Use
  Company Number: 09CZ000389

PATIENT
  Age: 39 Year
  Sex: Female

DRUGS (1)
  1. SIMVASTATIN [Suspect]
     Indication: WEIGHT CONTROL
     Dosage: 20 MG, 3 TIMES DAILY, ORAL; 20 MG, 35 TIMES  A DAY, ORAL
     Route: 048

REACTIONS (12)
  - ACUTE HEPATIC FAILURE [None]
  - COMPARTMENT SYNDROME [None]
  - DISSEMINATED INTRAVASCULAR COAGULATION [None]
  - HAEMODIALYSIS [None]
  - HYPOAESTHESIA [None]
  - INTENTIONAL DRUG MISUSE [None]
  - ISCHAEMIA [None]
  - MUSCLE NECROSIS [None]
  - PERIPHERAL EMBOLISM [None]
  - RENAL FAILURE ACUTE [None]
  - RHABDOMYOLYSIS [None]
  - SINUS TACHYCARDIA [None]
